FAERS Safety Report 8793876 (Version 2)
Quarter: 2015Q2

REPORT INFORMATION
  Report Type: Report from Study
  Country: US (occurrence: US)
  Receive Date: 20120917
  Receipt Date: 20150630
  Transmission Date: 20150821
  Serious: Yes (Death)
  Sender: FDA-Public Use
  Company Number: US-ROCHE-1126308

PATIENT
  Age: 72 Year
  Sex: Male

DRUGS (21)
  1. DURAGESIC [Concomitant]
     Active Substance: FENTANYL
     Route: 065
  2. PROCHLORPERAZINE. [Concomitant]
     Active Substance: PROCHLORPERAZINE
     Dosage: 5-10 MG
     Route: 048
  3. AREDIA [Concomitant]
     Active Substance: PAMIDRONATE DISODIUM
  4. LASIX [Concomitant]
     Active Substance: FUROSEMIDE
  5. OXYCODONE [Concomitant]
     Active Substance: OXYCODONE
  6. PRILOSEC [Concomitant]
     Active Substance: OMEPRAZOLE MAGNESIUM
     Route: 065
  7. MEGACE [Concomitant]
     Active Substance: MEGESTROL ACETATE
  8. ZOFRAN [Concomitant]
     Active Substance: ONDANSETRON HYDROCHLORIDE
     Route: 042
  9. ZOMETA [Concomitant]
     Active Substance: ZOLEDRONIC ACID
     Route: 042
  10. MIRALAX [Concomitant]
     Active Substance: POLYETHYLENE GLYCOL 3350
  11. DURAGESIC [Concomitant]
     Active Substance: FENTANYL
     Route: 065
  12. DECADRON [Concomitant]
     Active Substance: DEXAMETHASONE
     Route: 042
  13. ARANESP [Concomitant]
     Active Substance: DARBEPOETIN ALFA
     Route: 065
  14. BENADRYL [Concomitant]
     Active Substance: DIPHENHYDRAMINE HYDROCHLORIDE
     Route: 042
  15. LORAZEPAM. [Concomitant]
     Active Substance: LORAZEPAM
     Dosage: 0.5-1 MG
     Route: 048
  16. XELODA [Suspect]
     Active Substance: CAPECITABINE
     Indication: OESOPHAGEAL CARCINOMA
     Route: 048
  17. CARBOPLATIN. [Concomitant]
     Active Substance: CARBOPLATIN
     Route: 042
  18. AVASTIN [Suspect]
     Active Substance: BEVACIZUMAB
     Indication: OESOPHAGEAL CARCINOMA
     Route: 042
     Dates: start: 20051228
  19. TAXOTERE [Concomitant]
     Active Substance: DOCETAXEL
     Route: 042
  20. AVELOX (UNITED STATES) [Concomitant]
  21. SENOKOT [Concomitant]
     Active Substance: SENNOSIDES

REACTIONS (17)
  - Ataxia [Unknown]
  - Chest discomfort [Unknown]
  - Vomiting [Unknown]
  - Death [Fatal]
  - Ear congestion [Unknown]
  - Decreased appetite [Unknown]
  - Oropharyngeal pain [Unknown]
  - Nausea [Unknown]
  - Dizziness [Unknown]
  - Headache [Unknown]
  - Constipation [Unknown]
  - Stomatitis [Unknown]
  - Hypoacusis [Unknown]
  - Balance disorder [Unknown]
  - Sinus congestion [Unknown]
  - Off label use [Unknown]
  - Cough [Unknown]

NARRATIVE: CASE EVENT DATE: 20060121
